FAERS Safety Report 16702854 (Version 1)
Quarter: 2019Q3

REPORT INFORMATION
  Report Type: Spontaneous
  Country: US (occurrence: US)
  Receive Date: 20190628
  Receipt Date: 20190628
  Transmission Date: 20191004
  Serious: Yes (Hospitalization)
  Sender: FDA-Public Use
  Company Number: None

PATIENT
  Age: 63 Year
  Sex: Female

DRUGS (1)
  1. VERZENIO [Suspect]
     Active Substance: ABEMACICLIB
     Indication: BREAST CANCER
     Route: 048
     Dates: start: 201906

REACTIONS (5)
  - Diarrhoea [None]
  - Feeding disorder [None]
  - Weight decreased [None]
  - Dehydration [None]
  - Dysphagia [None]

NARRATIVE: CASE EVENT DATE: 201906
